FAERS Safety Report 23460215 (Version 2)
Quarter: 2024Q1

REPORT INFORMATION
  Report Type: Report from Study
  Country: US (occurrence: None)
  Receive Date: 20240131
  Receipt Date: 20240213
  Transmission Date: 20240409
  Serious: Yes (Death, Other)
  Sender: FDA-Public Use
  Company Number: 2024A021810

PATIENT
  Age: 85 Year
  Sex: Male

DRUGS (1)
  1. BRILINTA [Suspect]
     Active Substance: TICAGRELOR
     Route: 048

REACTIONS (6)
  - Death [Fatal]
  - Cardiac failure congestive [Unknown]
  - General physical health deterioration [Unknown]
  - Peripheral swelling [Unknown]
  - Oedema [Unknown]
  - Renal disorder [Unknown]

NARRATIVE: CASE EVENT DATE: 20231220
